FAERS Safety Report 15394679 (Version 1)
Quarter: 2018Q3

REPORT INFORMATION
  Report Type: Report from Study
  Country: GB (occurrence: GB)
  Receive Date: 20180918
  Receipt Date: 20180918
  Transmission Date: 20181010
  Serious: Yes (Other)
  Sender: FDA-Public Use
  Company Number: GB-EMD SERONO-9043574

PATIENT
  Sex: Male

DRUGS (5)
  1. SAIZEN [Suspect]
     Active Substance: SOMATROPIN
     Dosage: LIQUID CARTRIDGE, OFF THERAPY REASON: DECREASED SAIZEN DOSE.
     Route: 058
     Dates: start: 20131008, end: 20140606
  2. SAIZEN [Suspect]
     Active Substance: SOMATROPIN
     Dosage: LIQUID CARTRIDGE, OFF THERAPY REASON: DECREASED SAIZEN DOSE.
     Route: 058
     Dates: start: 20120530, end: 20131007
  3. SAIZEN [Suspect]
     Active Substance: SOMATROPIN
     Indication: GROWTH HORMONE DEFICIENCY
     Dosage: LIQUID CARTRIDGE, OFF THERAPY REASON: INCREASE THERAPY INITIATED.
     Route: 058
     Dates: start: 20120508, end: 20120530
  4. SAIZEN [Suspect]
     Active Substance: SOMATROPIN
     Route: 058
     Dates: start: 20161021
  5. SAIZEN [Suspect]
     Active Substance: SOMATROPIN
     Dosage: LIQUID CARTRIDGE, OFF THERAPY REASON: INCREASE THERAPY INITIATED.
     Route: 058
     Dates: start: 20140606, end: 20161021

REACTIONS (3)
  - Gastrointestinal disorder [Unknown]
  - Product administered at inappropriate site [Not Recovered/Not Resolved]
  - Injection site pain [Not Recovered/Not Resolved]

NARRATIVE: CASE EVENT DATE: 2018
